FAERS Safety Report 17302591 (Version 1)
Quarter: 2020Q1

REPORT INFORMATION
  Report Type: Report from Study
  Country: ES (occurrence: ES)
  Receive Date: 20200122
  Receipt Date: 20200122
  Transmission Date: 20200409
  Serious: Yes (Other)
  Sender: FDA-Public Use
  Company Number: ES-UCBSA-2020002291

PATIENT

DRUGS (2)
  1. BRIVIACT [Suspect]
     Active Substance: BRIVARACETAM
     Indication: PRODUCT USED FOR UNKNOWN INDICATION
     Dosage: UNKNOWN DOSE
  2. LEVETIRACETAM. [Suspect]
     Active Substance: LEVETIRACETAM
     Indication: PRODUCT USED FOR UNKNOWN INDICATION
     Dosage: UNKNOWN DOSE

REACTIONS (6)
  - Seizure [Unknown]
  - Irritability [Recovering/Resolving]
  - Depression [Recovering/Resolving]
  - Drug ineffective [Unknown]
  - Dizziness [Not Recovered/Not Resolved]
  - Somnolence [Recovering/Resolving]
